FAERS Safety Report 4554284-X (Version None)
Quarter: 2005Q1

REPORT INFORMATION
  Report Type: 
  Country: None (occurrence: None)
  Receive Date: 20050118
  Receipt Date: 20040305
  Transmission Date: 20050727
  Serious: Yes (Other)
  Sender: FDA-Public Use
  Company Number: US-GLAXOSMITHKLINE-A0502711A

PATIENT
  Age: 37 Year
  Sex: Female

DRUGS (1)
  1. PAXIL [Suspect]
     Indication: ANXIETY
     Dosage: 20MG PER DAY
     Route: 048
     Dates: start: 19990811, end: 19991110

REACTIONS (3)
  - CONVULSION [None]
  - DRUG WITHDRAWAL SYNDROME [None]
  - TREMOR [None]
